FAERS Safety Report 9491500 (Version 2)
Quarter: 2013Q1

REPORT INFORMATION
  Report Type: Report from Study
  Country: US (occurrence: US)
  Receive Date: 20121219
  Receipt Date: 20121219
  Transmission Date: 20140127
  Serious: Yes (Hospitalization)
  Sender: FDA-Public Use
  Company Number: US-LUNDBECK-DKLU1060554

PATIENT
  Age: 5 None
  Sex: Male
  Weight: 19.52 kg

DRUGS (15)
  1. CLOBAZAM [Suspect]
     Indication: LENNOX-GASTAUT SYNDROME
     Route: 048
     Dates: start: 20080630
  2. KEPPRA [Concomitant]
     Indication: CONVULSION
     Route: 048
     Dates: start: 20080103
  3. DEPAKOTE SPRINKLES [Concomitant]
     Indication: CONVULSION
     Route: 048
     Dates: start: 20060711
  4. CARNITOR [Concomitant]
     Indication: HYPOTONIA
     Route: 050
     Dates: start: 20060601
  5. VIGABATRIN [Concomitant]
     Indication: CONVULSION
     Route: 048
     Dates: start: 20080103
  6. NEXIUM [Concomitant]
     Indication: PRODUCT USED FOR UNKNOWN INDICATION
  7. ALBUTEROL SULFATE [Concomitant]
     Indication: ASTHMA
     Route: 050
     Dates: start: 2004
  8. DUONEB [Concomitant]
     Indication: ASTHMA
     Route: 050
     Dates: start: 2008
  9. PULMOZYME [Concomitant]
     Indication: BRONCHIAL HYPERREACTIVITY
     Route: 050
     Dates: start: 20080410
  10. CLONIDINE [Concomitant]
     Indication: INSOMNIA
     Route: 050
     Dates: start: 20080121
  11. MELATONIN [Concomitant]
     Indication: INSOMNIA
     Route: 050
     Dates: start: 2006
  12. PULMICORT [Concomitant]
     Indication: BRONCHIAL HYPERREACTIVITY
     Route: 050
     Dates: start: 2004
  13. CHLOROLHYDRATE [Concomitant]
     Indication: INSOMNIA
     Route: 050
     Dates: start: 20070130
  14. MELATONIN [Concomitant]
     Indication: INSOMNIA
     Route: 048
     Dates: start: 20020902
  15. ZITHROMAX [Concomitant]
     Indication: ANTIBIOTIC PROPHYLAXIS
     Route: 048

REACTIONS (1)
  - Pneumonia [Recovered/Resolved]
